FAERS Safety Report 7502288-7 (Version None)
Quarter: 2011Q2

REPORT INFORMATION
  Report Type: 
  Country: None (occurrence: None)
  Receive Date: 20110525
  Receipt Date: 20110513
  Transmission Date: 20111010
  Serious: Yes (Other)
  Sender: FDA-Public Use
  Company Number: US-BAYER-200922409NA

PATIENT
  Age: 51 Year
  Sex: Male
  Weight: 88.435 kg

DRUGS (13)
  1. TRASYLOL [Suspect]
     Dosage: UNK
     Dates: start: 20030709, end: 20030709
  2. TRASYLOL [Suspect]
     Indication: CORONARY ARTERY BYPASS
     Dosage: 100 CC THEN 25 CC/HOUR
     Route: 042
     Dates: start: 20030709, end: 20030709
  3. ZETIA [Concomitant]
     Dosage: 10 MG, QD
     Route: 048
     Dates: start: 20030101
  4. ISOSORBIDE MONONITRATE [Concomitant]
     Dosage: 100 MG, UNK
     Route: 048
     Dates: start: 20030101
  5. AVAPRO [Concomitant]
     Dosage: 300 MG, QD
     Route: 048
     Dates: start: 20030101
  6. LIPITOR [Concomitant]
     Dosage: 40 MG, QD
     Route: 048
     Dates: start: 20030101
  7. AVANDIA [Concomitant]
     Dosage: 80 MG, QD
     Route: 048
     Dates: start: 20030101
  8. NITROGLYCERIN [Concomitant]
     Dosage: 0.4 MG AS NEEDED
     Route: 048
     Dates: start: 20030101
  9. ACETYLSALICYLIC ACID SRT [Concomitant]
     Dosage: 81 MG, QD
  10. TOPROL-XL [Concomitant]
     Dosage: 100 MG, QD
     Route: 048
     Dates: start: 20030101
  11. PLAVIX [Concomitant]
     Dosage: 75 MG, QD
     Route: 048
     Dates: start: 20030101
  12. TOPROL-XL [Concomitant]
     Dosage: 100 MG, QD
  13. TRICOR [Concomitant]
     Dosage: 160 MG, QD

REACTIONS (12)
  - RENAL IMPAIRMENT [None]
  - INJURY [None]
  - MULTI-ORGAN FAILURE [None]
  - EMOTIONAL DISTRESS [None]
  - STRESS [None]
  - RENAL FAILURE [None]
  - RENAL INJURY [None]
  - ANXIETY [None]
  - UNEVALUABLE EVENT [None]
  - FEAR [None]
  - PAIN [None]
  - ANHEDONIA [None]
